FAERS Safety Report 20726810 (Version 1)
Quarter: 2022Q2

REPORT INFORMATION
  Report Type: Spontaneous
  Country: US (occurrence: US)
  Receive Date: 20220419
  Receipt Date: 20220419
  Transmission Date: 20220721
  Serious: Yes (Other)
  Sender: FDA-Public Use
  Company Number: US-JAZZ-2021-US-020507

PATIENT
  Age: 75 Year
  Sex: Female

DRUGS (11)
  1. XYWAV [Suspect]
     Active Substance: CALCIUM OXYBATE\MAGNESIUM OXYBATE\POTASSIUM OXYBATE\SODIUM OXYBATE
     Indication: Narcolepsy
     Dosage: UNKNOWN DOSE AND FREQUENCY
     Route: 048
  2. DEXTROAMPHETAMINE [Concomitant]
     Active Substance: DEXTROAMPHETAMINE
  3. VITAMIN C [Concomitant]
     Active Substance: ASCORBIC ACID
  4. ATORVASTATIN [Concomitant]
     Active Substance: ATORVASTATIN
  5. CALCIUM [Concomitant]
     Active Substance: CALCIUM
  6. HYDROCHLOROTHIAZIDE [Concomitant]
     Active Substance: HYDROCHLOROTHIAZIDE
  7. LISINOPRIL [Concomitant]
     Active Substance: LISINOPRIL
  8. METFORMIN [Concomitant]
     Active Substance: METFORMIN HYDROCHLORIDE
  9. INSULIN ASPART [Concomitant]
     Active Substance: INSULIN ASPART
  10. OMEGA 3 FISH OIL [FISH OIL] [Concomitant]
  11. VENLAFAXINE [Concomitant]
     Active Substance: VENLAFAXINE HYDROCHLORIDE

REACTIONS (2)
  - Depressed level of consciousness [Recovered/Resolved]
  - Medication error [Unknown]
